FAERS Safety Report 11350415 (Version 4)
Quarter: 2015Q4

REPORT INFORMATION
  Report Type: Spontaneous
  Country: US (occurrence: US)
  Receive Date: 20150807
  Receipt Date: 20151211
  Transmission Date: 20160304
  Serious: Yes (Death, Hospitalization, Other)
  Sender: FDA-Public Use
  Company Number: US-BAYER-2015-390103

PATIENT
  Age: 63 Year
  Sex: Male

DRUGS (4)
  1. XGEVA [Concomitant]
     Active Substance: DENOSUMAB
  2. XOFIGO [Suspect]
     Active Substance: RADIUM RA-223 DICHLORIDE
     Indication: PROSTATE CANCER METASTATIC
     Dosage: UNK
     Route: 042
     Dates: start: 20150427
  3. XOFIGO [Suspect]
     Active Substance: RADIUM RA-223 DICHLORIDE
     Indication: PROSTATE CANCER METASTATIC
     Dosage: UNK
     Route: 042
     Dates: start: 20150302
  4. ZYTIGA [Concomitant]
     Active Substance: ABIRATERONE ACETATE

REACTIONS (4)
  - Prostate cancer [Fatal]
  - Road traffic accident [None]
  - Metastases to central nervous system [None]
  - Post-traumatic amnestic disorder [None]

NARRATIVE: CASE EVENT DATE: 20150306
